FAERS Safety Report 13343339 (Version 1)
Quarter: 2017Q1

REPORT INFORMATION
  Report Type: Spontaneous
  Country: IT (occurrence: IT)
  Receive Date: 20170316
  Receipt Date: 20170316
  Transmission Date: 20170428
  Serious: Yes (Death)
  Sender: FDA-Public Use
  Company Number: IT-BAYER-2017-046320

PATIENT
  Age: 78 Year
  Sex: Male

DRUGS (8)
  1. LEDERFOLIN [Concomitant]
     Active Substance: LEUCOVORIN CALCIUM
     Dosage: UNK
  2. CRESTOR [Concomitant]
     Active Substance: ROSUVASTATIN CALCIUM
     Dosage: UNK
  3. CARDIOASPIRIN 100 MG [Suspect]
     Active Substance: ASPIRIN
     Indication: THROMBOSIS PROPHYLAXIS
     Dosage: UNK
     Route: 048
     Dates: start: 20160101, end: 20160416
  4. ZYLORIC [Concomitant]
     Active Substance: ALLOPURINOL
     Dosage: UNK
  5. HUMALOG [Concomitant]
     Active Substance: INSULIN LISPRO
     Dosage: UNK
  6. FERRO-GRAD [Concomitant]
     Active Substance: FERROUS SULFATE
     Dosage: UNK
  7. CALCITRIOL. [Concomitant]
     Active Substance: CALCITRIOL
  8. BISOPROLOL FUMARATE. [Concomitant]
     Active Substance: BISOPROLOL FUMARATE
     Dosage: UNK

REACTIONS (2)
  - Shock haemorrhagic [Fatal]
  - Melaena [Fatal]

NARRATIVE: CASE EVENT DATE: 20160416
